FAERS Safety Report 13963860 (Version 1)
Quarter: 2017Q3

REPORT INFORMATION
  Report Type: Spontaneous
  Country: US (occurrence: None)
  Receive Date: 20170913
  Receipt Date: 20170913
  Transmission Date: 20171128
  Serious: No
  Sender: FDA-Public Use
  Company Number: None

PATIENT
  Age: 18 Year
  Sex: Male
  Weight: 72.57 kg

DRUGS (3)
  1. MESALAMINE DR 1.2GM TABLET (GENERIC FOR LIALDA) [Suspect]
     Active Substance: MESALAMINE
     Indication: CROHN^S DISEASE
     Route: 048
     Dates: start: 20170823, end: 20170901
  2. MULTIVITAMIN [Concomitant]
     Active Substance: VITAMINS
  3. LIALDA [Concomitant]
     Active Substance: MESALAMINE

REACTIONS (4)
  - Abdominal pain [None]
  - Nausea [None]
  - Retching [None]
  - Product odour abnormal [None]

NARRATIVE: CASE EVENT DATE: 20170823
